FAERS Safety Report 6896513-3 (Version None)
Quarter: 2010Q3

REPORT INFORMATION
  Report Type: 
  Country: None (occurrence: None)
  Receive Date: 20100802
  Receipt Date: 20090312
  Transmission Date: 20110219
  Serious: No
  Sender: FDA-Public Use
  Company Number: US-PFIZER INC-2009161763

PATIENT
  Sex: Male
  Weight: 102 kg

DRUGS (1)
  1. AMLODIPINE BESYLATE [Suspect]
     Indication: HYPERTENSION
     Dosage: 5 MG, 1X/DAY
     Dates: start: 20080201

REACTIONS (3)
  - HYPERSENSITIVITY [None]
  - NASAL CONGESTION [None]
  - SNEEZING [None]
